FAERS Safety Report 16421992 (Version 1)
Quarter: 2019Q2

REPORT INFORMATION
  Report Type: Spontaneous
  Country: US (occurrence: US)
  Receive Date: 20190612
  Receipt Date: 20190612
  Transmission Date: 20190711
  Serious: No
  Sender: FDA-Public Use
  Company Number: US-PERRIGO-19US000488

PATIENT
  Sex: Male
  Weight: 83.9 kg

DRUGS (2)
  1. GOLD BOND ORIGINAL STRENGTH POWDER [Concomitant]
     Active Substance: MENTHOL\ZINC OXIDE
     Indication: SKIN IRRITATION
     Dosage: UNK
     Route: 061
     Dates: start: 201901
  2. MINOXIDIL. [Suspect]
     Active Substance: MINOXIDIL
     Indication: ALOPECIA
     Dosage: 1/2 CAPFUL, QD
     Route: 061
     Dates: start: 201811, end: 20181231

REACTIONS (4)
  - Skin exfoliation [Not Recovered/Not Resolved]
  - Skin irritation [Recovering/Resolving]
  - Inappropriate schedule of product administration [Recovered/Resolved]
  - Application site dryness [Not Recovered/Not Resolved]

NARRATIVE: CASE EVENT DATE: 201811
